FAERS Safety Report 4995081-0 (Version None)
Quarter: 2006Q2

REPORT INFORMATION
  Report Type: 
  Country: None (occurrence: None)
  Receive Date: 20060503
  Receipt Date: 20060425
  Transmission Date: 20061013
  Serious: Yes (Other)
  Sender: FDA-Public Use
  Company Number: 2006035115

PATIENT
  Age: 52 Day
  Sex: Female

DRUGS (4)
  1. ZYRTEC [Suspect]
     Indication: ILL-DEFINED DISORDER
  2. ZANTAC [Suspect]
     Indication: GASTROOESOPHAGEAL REFLUX DISEASE
     Dates: start: 20040101
  3. REGLAN [Suspect]
     Indication: GASTROOESOPHAGEAL REFLUX DISEASE
     Dates: start: 20040202
  4. MAALOX (ALUMINIUM HYDROXIDE GEL, MANGESIUM HYDROXIDE) [Suspect]
     Indication: GASTROOESOPHAGEAL REFLUX DISEASE
     Dates: start: 20040202

REACTIONS (6)
  - CONDITION AGGRAVATED [None]
  - CONVULSION [None]
  - DRUG DISPENSING ERROR [None]
  - DYSKINESIA [None]
  - NERVOUS SYSTEM DISORDER [None]
  - SLEEP DISORDER [None]
